FAERS Safety Report 5081967-8 (Version None)
Quarter: 2006Q3

REPORT INFORMATION
  Report Type: 
  Country: None (occurrence: None)
  Receive Date: 20060811
  Receipt Date: 20060727
  Transmission Date: 20061208
  Serious: Yes (Life-Threatening, Hospitalization)
  Sender: FDA-Public Use
  Company Number: GXKR2006PL04322

PATIENT
  Age: 66 Year
  Sex: Female

DRUGS (1)
  1. TICLOPIDINE HCL [Suspect]
     Indication: PROPHYLAXIS

REACTIONS (4)
  - PANCYTOPENIA [None]
  - PNEUMONIA [None]
  - RASH [None]
  - SEPTIC SHOCK [None]
